FAERS Safety Report 18044833 (Version 1)
Quarter: 2020Q3

REPORT INFORMATION
  Report Type: Spontaneous
  Country: IN (occurrence: IN)
  Receive Date: 20200720
  Receipt Date: 20200720
  Transmission Date: 20201103
  Serious: Yes (Hospitalization, Other)
  Sender: FDA-Public Use
  Company Number: IN-HETERO-HET2020IN00776

PATIENT
  Age: 60 Year
  Sex: Male

DRUGS (2)
  1. SERTRALINE [Suspect]
     Active Substance: SERTRALINE HYDROCHLORIDE
     Indication: MAJOR DEPRESSION
     Dosage: 50 MG
     Dates: start: 201704
  2. VENLAFAXINE [Suspect]
     Active Substance: VENLAFAXINE HYDROCHLORIDE
     Indication: MAJOR DEPRESSION
     Dosage: 75 MG
     Dates: start: 201707

REACTIONS (3)
  - Generalised tonic-clonic seizure [Recovered/Resolved]
  - Hyponatraemic seizure [Recovered/Resolved]
  - Inappropriate antidiuretic hormone secretion [Recovered/Resolved]

NARRATIVE: CASE EVENT DATE: 201704
